FAERS Safety Report 8456712-6 (Version None)
Quarter: 2012Q2

REPORT INFORMATION
  Report Type: 
  Country: None (occurrence: None)
  Receive Date: 20120621
  Receipt Date: 20120612
  Transmission Date: 20120825
  Serious: Yes (Hospitalization)
  Sender: FDA-Public Use
  Company Number: JP-ASTRAZENECA-2012SE36636

PATIENT
  Age: 14968 Day
  Sex: Male
  Weight: 98 kg

DRUGS (5)
  1. NIFEDIPINE [Concomitant]
     Route: 048
     Dates: start: 20120312
  2. RASILEZ [Concomitant]
     Indication: HYPERTENSION
     Route: 048
     Dates: start: 20111028, end: 20120312
  3. CRESTOR [Suspect]
     Indication: HYPERCHOLESTEROLAEMIA
     Route: 048
     Dates: start: 20110929, end: 20120101
  4. DIOVAN [Concomitant]
     Indication: HYPERTENSION
     Route: 048
     Dates: start: 20110713
  5. NIFEDIPINE [Concomitant]
     Indication: HYPERTENSION
     Route: 048
     Dates: start: 20110701, end: 20120312

REACTIONS (1)
  - LIVER DISORDER [None]
